FAERS Safety Report 18549948 (Version 1)
Quarter: 2020Q4

REPORT INFORMATION
  Report Type: Report from Study
  Country: US (occurrence: US)
  Receive Date: 20201126
  Receipt Date: 20201126
  Transmission Date: 20210114
  Serious: Yes (Hospitalization, Other)
  Sender: FDA-Public Use
  Company Number: US-GILEAD-2020-0492820

PATIENT
  Age: 70 Year
  Sex: Male

DRUGS (19)
  1. PROTONIX [OMEPRAZOLE] [Concomitant]
     Active Substance: OMEPRAZOLE
  2. ZYRTEC [Concomitant]
     Active Substance: CETIRIZINE HYDROCHLORIDE
  3. ACETAZOLAMIDE. [Concomitant]
     Active Substance: ACETAZOLAMIDE
  4. MAGNESIUM [Concomitant]
     Active Substance: MAGNESIUM
  5. SINGULAIR [Concomitant]
     Active Substance: MONTELUKAST SODIUM
  6. ATORVASTATIN [Concomitant]
     Active Substance: ATORVASTATIN
  7. DIGOXIN. [Concomitant]
     Active Substance: DIGOXIN
  8. METFORMIN [Concomitant]
     Active Substance: METFORMIN HYDROCHLORIDE
  9. DILTIAZEM. [Concomitant]
     Active Substance: DILTIAZEM
  10. MUCINEX [Concomitant]
     Active Substance: GUAIFENESIN
  11. PREDNISONE. [Concomitant]
     Active Substance: PREDNISONE
  12. XANAX [Concomitant]
     Active Substance: ALPRAZOLAM
  13. CALCIUM + D3 [CALCIUM;COLECALCIFEROL] [Concomitant]
  14. PROAIR HFA [Concomitant]
     Active Substance: ALBUTEROL SULFATE
  15. FUROSEMIDE. [Concomitant]
     Active Substance: FUROSEMIDE
  16. ADVAIR HFA [Concomitant]
     Active Substance: FLUTICASONE PROPIONATE\SALMETEROL XINAFOATE
  17. AZTREONAM LYSINE [Suspect]
     Active Substance: AZTREONAM LYSINE
     Indication: BRONCHIAL DISORDER
     Dosage: 75 MG, TID, 28 DAYS ON, 28 DAYS OFF
     Route: 055
     Dates: start: 201910
  18. ASPIRIN [ACETYLSALICYLIC ACID] [Concomitant]
     Active Substance: ASPIRIN
  19. SPIRIVA [Concomitant]
     Active Substance: TIOTROPIUM BROMIDE MONOHYDRATE

REACTIONS (2)
  - Atrial fibrillation [Unknown]
  - Pneumonia [Unknown]
